FAERS Safety Report 8392663-3 (Version None)
Quarter: 2012Q2

REPORT INFORMATION
  Report Type: 
  Country: None (occurrence: None)
  Receive Date: 20120529
  Receipt Date: 20120514
  Transmission Date: 20120825
  Serious: Yes (Other)
  Sender: FDA-Public Use
  Company Number: GB-WATSON-2012-08712

PATIENT
  Age: 44 Year
  Sex: Female

DRUGS (1)
  1. FLUOXETINE HCL [Suspect]
     Indication: MYASTHENIC SYNDROME
     Dosage: 40 MG, DAILY
     Route: 065

REACTIONS (1)
  - SEROTONIN SYNDROME [None]
